FAERS Safety Report 24879718 (Version 2)
Quarter: 2025Q1

REPORT INFORMATION
  Report Type: Report from Study
  Country: JP (occurrence: JP)
  Receive Date: 20250123
  Receipt Date: 20250224
  Transmission Date: 20250408
  Serious: Yes (Hospitalization, Other)
  Sender: ALEXION PHARMACEUTICALS
  Company Number: JP-ASTRAZENECA-250005184_032420_P_1

PATIENT
  Age: 72 Year
  Weight: 61 kg

DRUGS (8)
  1. TEZEPELUMAB [Suspect]
     Active Substance: TEZEPELUMAB
     Indication: Asthma
  2. BUDESONIDE [Concomitant]
     Active Substance: BUDESONIDE
  3. FLUTIFORM [Concomitant]
     Active Substance: FLUTIFORM
     Indication: Asthma
  4. FLUTIFORM [Concomitant]
     Active Substance: FLUTIFORM
  5. FLUTIFORM [Concomitant]
     Active Substance: FLUTIFORM
  6. PRANLUKAST [Concomitant]
     Active Substance: PRANLUKAST
     Indication: Asthma
  7. ATORVASTATIN [Concomitant]
     Active Substance: ATORVASTATIN
     Indication: Hyperlipidaemia
  8. METFORMIN HYDROCHLORIDE [Concomitant]
     Active Substance: METFORMIN HYDROCHLORIDE
     Indication: Diabetes mellitus

REACTIONS (1)
  - Lacunar infarction [Recovered/Resolved]
